FAERS Safety Report 7291213-2 (Version None)
Quarter: 2011Q1

REPORT INFORMATION
  Report Type: 
  Country: None (occurrence: None)
  Receive Date: 20110214
  Receipt Date: 20110208
  Transmission Date: 20110831
  Serious: Yes (Other)
  Sender: FDA-Public Use
  Company Number: US-PFIZER INC-2011029058

PATIENT
  Sex: Male
  Weight: 68.934 kg

DRUGS (3)
  1. TAMSULOSIN [Concomitant]
     Indication: MICTURITION DISORDER
     Dosage: 4 MG, 1X/DAY
     Route: 048
  2. VIAGRA [Suspect]
     Indication: ERECTILE DYSFUNCTION
     Dosage: 100 MG, UNK
     Route: 048
  3. CLONAZEPAM [Concomitant]
     Indication: SLEEP DISORDER
     Dosage: 0.5 MG, 1X/DAY
     Route: 048

REACTIONS (2)
  - HERNIA [None]
  - DRUG INEFFECTIVE [None]
